FAERS Safety Report 21529148 (Version 1)
Quarter: 2022Q4

REPORT INFORMATION
  Report Type: Spontaneous
  Country: IT (occurrence: IT)
  Receive Date: 20221031
  Receipt Date: 20221031
  Transmission Date: 20230113
  Serious: Yes (Other)
  Sender: FDA-Public Use
  Company Number: IT-OTSUKA-2022_036592

PATIENT
  Age: 34 Year
  Sex: Female

DRUGS (1)
  1. ARIPIPRAZOLE [Suspect]
     Active Substance: ARIPIPRAZOLE
     Indication: Schizoaffective disorder
     Dosage: 10 MG
     Route: 065

REACTIONS (3)
  - Abortion spontaneous [Recovered/Resolved]
  - Product use in unapproved indication [Unknown]
  - Maternal exposure during pregnancy [Unknown]
